FAERS Safety Report 22332662 (Version 1)
Quarter: 2023Q2

REPORT INFORMATION
  Report Type: Spontaneous
  Country: US (occurrence: US)
  Receive Date: 20230517
  Receipt Date: 20230517
  Transmission Date: 20230722
  Serious: Yes (Other)
  Sender: FDA-Public Use
  Company Number: US-MLMSERVICE-20230428-4254833-1

PATIENT
  Age: 75 Year
  Sex: Male

DRUGS (3)
  1. DOXYCYCLINE [Suspect]
     Active Substance: DOXYCYCLINE
     Indication: Spirochaetal infection
     Route: 048
     Dates: start: 2019, end: 2019
  2. DOXYCYCLINE [Suspect]
     Active Substance: DOXYCYCLINE
     Indication: Antibiotic therapy
  3. RITUXIMAB [Concomitant]
     Active Substance: RITUXIMAB
     Indication: Follicular lymphoma
     Dosage: UNKNOWN (MAINTENANCE THERAPY)
     Route: 065

REACTIONS (1)
  - Jarisch-Herxheimer reaction [Recovered/Resolved]

NARRATIVE: CASE EVENT DATE: 20190101
